FAERS Safety Report 7125050-6 (Version None)
Quarter: 2010Q4

REPORT INFORMATION
  Report Type: 
  Country: None (occurrence: None)
  Receive Date: 20101129
  Receipt Date: 20101115
  Transmission Date: 20110411
  Serious: No
  Sender: FDA-Public Use
  Company Number: US-JNJFOC-20101105730

PATIENT
  Sex: Male

DRUGS (11)
  1. FENTANYL-100 [Suspect]
     Indication: ARTHRALGIA
     Route: 062
  2. FENTANYL-100 [Suspect]
     Route: 062
  3. FENTANYL-100 [Suspect]
     Indication: BACK PAIN
     Route: 062
  4. FENTANYL-100 [Suspect]
     Indication: NECK PAIN
     Route: 062
  5. FENTANYL [Suspect]
     Indication: ARTHRALGIA
     Route: 062
  6. FENTANYL [Suspect]
     Route: 062
  7. FENTANYL [Suspect]
     Indication: BACK PAIN
     Route: 062
  8. FENTANYL [Suspect]
     Indication: NECK PAIN
     Route: 062
  9. VICODIN [Concomitant]
     Indication: PAIN
     Dosage: 10/500/TABLET/3 TIMES
     Route: 048
  10. ALEVE (CAPLET) [Concomitant]
     Indication: INFLAMMATION
     Route: 048
  11. ALEVE (CAPLET) [Concomitant]
     Indication: PAIN
     Route: 048

REACTIONS (2)
  - DRUG ADMINISTERED AT INAPPROPRIATE SITE [None]
  - WRONG TECHNIQUE IN DRUG USAGE PROCESS [None]
